FAERS Safety Report 9183306 (Version 1)
Quarter: 2013Q1

REPORT INFORMATION
  Report Type: Spontaneous
  Country: SE (occurrence: SE)
  Receive Date: 20130322
  Receipt Date: 20130322
  Transmission Date: 20140127
  Serious: Yes (Other)
  Sender: FDA-Public Use
  Company Number: SE-ELI_LILLY_AND_COMPANY-SE201303005285

PATIENT
  Sex: Male

DRUGS (2)
  1. STRATTERA [Suspect]
     Dosage: UNK
     Dates: start: 201010, end: 201101
  2. MELATONIN [Concomitant]

REACTIONS (4)
  - Hypnagogic hallucination [Not Recovered/Not Resolved]
  - Sleep paralysis [Not Recovered/Not Resolved]
  - Delusion [Not Recovered/Not Resolved]
  - Sleep terror [Not Recovered/Not Resolved]
